FAERS Safety Report 5063293-6 (Version None)
Quarter: 2006Q3

REPORT INFORMATION
  Report Type: 
  Country: None (occurrence: None)
  Receive Date: 20060703
  Receipt Date: 20060513
  Transmission Date: 20061208
  Serious: No
  Sender: FDA-Public Use
  Company Number: 2006PV013750

PATIENT
  Age: 51 Year
  Sex: Female
  Weight: 95.2554 kg

DRUGS (5)
  1. SYMLIN [Suspect]
     Indication: DIABETES MELLITUS NON-INSULIN-DEPENDENT
     Dosage: 120 MCG;TID;SC
     Route: 058
     Dates: start: 20060401, end: 20060512
  2. METFORMIN/GLYBURIDE [Concomitant]
  3. ACTOPLUS MET [Concomitant]
  4. LANTUS [Concomitant]
  5. HUMALOG [Concomitant]

REACTIONS (4)
  - BLOOD GLUCOSE DECREASED [None]
  - BLOOD GLUCOSE INCREASED [None]
  - NAUSEA [None]
  - VISION BLURRED [None]
